FAERS Safety Report 10074243 (Version 1)
Quarter: 2014Q2

REPORT INFORMATION
  Report Type: Spontaneous
  Country: US (occurrence: US)
  Receive Date: 20140413
  Receipt Date: 20140413
  Transmission Date: 20141212
  Serious: Yes (Other)
  Sender: FDA-Public Use
  Company Number: US-ENDO PHARMACEUTICALS INC.-OPCR20140117

PATIENT
  Age: 34 Year
  Sex: Female

DRUGS (6)
  1. OPANA 5MG [Suspect]
     Indication: INTERVERTEBRAL DISC PROTRUSION
     Route: 048
     Dates: start: 201403
  2. OPANA 5MG [Suspect]
     Indication: ARTHRALGIA
  3. OPANA ER 15 MG [Suspect]
     Indication: INTERVERTEBRAL DISC PROTRUSION
     Route: 048
     Dates: start: 201404
  4. OPANA ER 15 MG [Suspect]
     Indication: ARTHRALGIA
  5. FENTANYL [Concomitant]
     Indication: INTERVERTEBRAL DISC PROTRUSION
     Dosage: 37MCG (25 ANDN 12 MCG)
     Route: 061
  6. FENTANYL [Concomitant]
     Indication: ARTHRALGIA

REACTIONS (2)
  - Chest pain [Recovering/Resolving]
  - Withdrawal syndrome [Recovering/Resolving]
